FAERS Safety Report 4306817-6 (Version None)
Quarter: 2004Q1

REPORT INFORMATION
  Report Type: 
  Country: None (occurrence: None)
  Receive Date: 20040225
  Receipt Date: 20040212
  Transmission Date: 20041129
  Serious: Yes (Other)
  Sender: FDA-Public Use
  Company Number: HQWYE524022JAN04

PATIENT
  Age: 23 Year
  Sex: Female
  Weight: 77.18 kg

DRUGS (3)
  1. EFFEXOR XR [Suspect]
     Indication: PANIC DISORDER
     Dosage: 37.5 MG 1X PER 1 DAY, ORAL; 75 MG 1X PER 1 DAY, ORAL
     Route: 048
     Dates: start: 20031022, end: 20031201
  2. EFFEXOR XR [Suspect]
     Indication: PANIC DISORDER
     Dosage: 37.5 MG 1X PER 1 DAY, ORAL; 75 MG 1X PER 1 DAY, ORAL
     Route: 048
     Dates: start: 20031201
  3. XANAX [Concomitant]

REACTIONS (4)
  - CLOSED HEAD INJURY [None]
  - MIDDLE INSOMNIA [None]
  - NIGHTMARE [None]
  - ROAD TRAFFIC ACCIDENT [None]
